FAERS Safety Report 9505381 (Version 1)
Quarter: 2013Q1

REPORT INFORMATION
  Report Type: Spontaneous
  Country: US (occurrence: None)
  Receive Date: 20130220
  Receipt Date: 20130220
  Transmission Date: 20140127
  Serious: No
  Sender: FDA-Public Use
  Company Number: 1000040163

PATIENT
  Age: 69 Year
  Sex: Female

DRUGS (2)
  1. VIIBRYD(VILAZODONE HYDROCHLORIDE) TABLET [Suspect]
     Indication: DEPRESSION
     Dosage: 10 MG (10 MG, 1 IN 1 D), ORAL
     Route: 048
     Dates: start: 20121029, end: 20121103
  2. LEVOXYL (LEVOTHYROXINEI SDIUM) (LEVOTHYROXINE SODIUM) [Concomitant]

REACTIONS (9)
  - Musculoskeletal stiffness [None]
  - Tension headache [None]
  - Muscle tightness [None]
  - Muscle rigidity [None]
  - Agitation [None]
  - Muscle twitching [None]
  - Burning sensation [None]
  - Paraesthesia [None]
  - Insomnia [None]
